FAERS Safety Report 6693190-1 (Version None)
Quarter: 2010Q2

REPORT INFORMATION
  Report Type: 
  Country: None (occurrence: None)
  Receive Date: 20100422
  Receipt Date: 20100413
  Transmission Date: 20101027
  Serious: Yes (Other)
  Sender: FDA-Public Use
  Company Number: GB-ELI_LILLY_AND_COMPANY-GB201004003398

PATIENT
  Age: 79 Year

DRUGS (1)
  1. BYETTA [Suspect]

REACTIONS (1)
  - ARTHRITIS BACTERIAL [None]
